FAERS Safety Report 6721603-5 (Version None)
Quarter: 2010Q2

REPORT INFORMATION
  Report Type: 
  Country: None (occurrence: None)
  Receive Date: 20100512
  Receipt Date: 20100429
  Transmission Date: 20101027
  Serious: Yes (Other)
  Sender: FDA-Public Use
  Company Number: PHHY2010AU22184

PATIENT
  Sex: Female

DRUGS (1)
  1. CLOZARIL [Suspect]
     Dosage: 550 MG
     Route: 048
     Dates: start: 20100202, end: 20100403

REACTIONS (4)
  - ABDOMINAL DISCOMFORT [None]
  - GASTRITIS [None]
  - TREATMENT NONCOMPLIANCE [None]
  - VOMITING [None]
